FAERS Safety Report 17171615 (Version 1)
Quarter: 2019Q4

REPORT INFORMATION
  Report Type: Report from Study
  Country: US (occurrence: US)
  Receive Date: 20191218
  Receipt Date: 20191218
  Transmission Date: 20200122
  Serious: Yes (Hospitalization, Other)
  Sender: FDA-Public Use
  Company Number: PHHY2019US061771

PATIENT
  Age: 20 Year
  Sex: Male
  Weight: 51.6 kg

DRUGS (27)
  1. TOBRAMYCIN. [Suspect]
     Active Substance: TOBRAMYCIN
     Dosage: UNK
     Route: 065
     Dates: start: 20190101, end: 20190116
  2. TOBRAMYCIN. [Concomitant]
     Active Substance: TOBRAMYCIN
     Indication: PSEUDOMONAS INFECTION
     Dosage: 560 MILLIGRAM, QD
     Route: 042
     Dates: start: 20190117, end: 20190210
  3. BUDESONIDE. [Concomitant]
     Active Substance: BUDESONIDE
     Indication: CYSTIC FIBROSIS LUNG
     Dosage: 0.25 MILLIGRAM, BID
     Route: 045
     Dates: start: 20190123, end: 20190211
  4. CEFTAZIDIME. [Concomitant]
     Active Substance: CEFTAZIDIME
     Dosage: 200 MILLIGRAM, TID
     Route: 042
     Dates: start: 20190210, end: 20190211
  5. IBUPROFEN. [Concomitant]
     Active Substance: IBUPROFEN
     Indication: PAIN
     Dosage: 600 MILLIGRAM, PRN
     Route: 048
     Dates: start: 20190123, end: 20190207
  6. PROCHLORPERAZINE. [Concomitant]
     Active Substance: PROCHLORPERAZINE
     Indication: HEADACHE
     Dosage: 5 MILLIGRAM, QD
     Route: 048
     Dates: start: 20190123, end: 20190123
  7. DOXYCYCLINE. [Concomitant]
     Active Substance: DOXYCYCLINE
     Dosage: 100 MILLIGRAM, BID
     Route: 048
     Dates: start: 20190119
  8. MORPHINE [Concomitant]
     Active Substance: MORPHINE
     Indication: PAIN
     Dosage: 4 MILLIGRAM, QD
     Route: 042
     Dates: start: 20190116, end: 20190116
  9. ACETAMINOPHEN. [Concomitant]
     Active Substance: ACETAMINOPHEN
     Indication: PAIN
     Dosage: 650 MILLIGRAM, PRN
     Route: 048
     Dates: start: 20190119, end: 20190211
  10. CEFTAZIDIME. [Concomitant]
     Active Substance: CEFTAZIDIME
     Indication: INFECTIVE PULMONARY EXACERBATION OF CYSTIC FIBROSIS
     Dosage: 200 MILLIGRAM, BID
     Route: 042
     Dates: start: 20190206, end: 20190206
  11. DOXYCYCLINE. [Concomitant]
     Active Substance: DOXYCYCLINE
     Indication: INFECTIVE PULMONARY EXACERBATION OF CYSTIC FIBROSIS
     Dosage: 100 MILLIGRAM, QD
     Route: 048
     Dates: start: 20190118, end: 20190118
  12. MEROPENEM. [Concomitant]
     Active Substance: MEROPENEM
     Indication: INFECTIVE PULMONARY EXACERBATION OF CYSTIC FIBROSIS
     Dosage: 200 MILLIGRAM, BID
     Route: 042
     Dates: start: 20190116, end: 20190116
  13. CETIRIZINE [Concomitant]
     Active Substance: CETIRIZINE HYDROCHLORIDE
     Indication: RHINITIS ALLERGIC
     Dosage: UNK
     Route: 065
     Dates: start: 20090701
  14. ACETAMINOPHEN. [Concomitant]
     Active Substance: ACETAMINOPHEN
     Dosage: 790 MILLIGRAM, QD
     Route: 048
     Dates: start: 20190117, end: 20190117
  15. DIPHENHYDRAMINE. [Concomitant]
     Active Substance: DIPHENHYDRAMINE
     Indication: HYPERSENSITIVITY
     Dosage: 50 MILLIGRAM, PRN
     Route: 048
     Dates: start: 20190207, end: 20190209
  16. ZINC SULFATE. [Concomitant]
     Active Substance: ZINC SULFATE
     Indication: ZINC DEFICIENCY
     Dosage: 55 MILLIGRAM, QD
     Route: 048
     Dates: start: 20190131, end: 20190131
  17. FAMOTIDINE. [Concomitant]
     Active Substance: FAMOTIDINE
     Indication: DYSPEPSIA
     Dosage: 20 MILLIGRAM, QD
     Route: 048
     Dates: start: 20190127, end: 20190127
  18. MEROPENEM. [Concomitant]
     Active Substance: MEROPENEM
     Dosage: 200 MILLIGRAM, QD
     Route: 042
     Dates: start: 20190206, end: 20190206
  19. PSEUDOEPHEDRIN [Concomitant]
     Active Substance: PSEUDOEPHEDRINE
     Indication: INFECTIVE PULMONARY EXACERBATION OF CYSTIC FIBROSIS
     Dosage: 30 MILLIGRAM, PRN
     Route: 048
     Dates: start: 20190119, end: 20190121
  20. TOBRAMYCIN. [Suspect]
     Active Substance: TOBRAMYCIN
     Indication: INFECTIVE PULMONARY EXACERBATION OF CYSTIC FIBROSIS
     Dosage: 112 MG, BID
     Route: 065
     Dates: start: 20130726
  21. PULMOZYME [Concomitant]
     Active Substance: DORNASE ALFA
     Indication: CYSTIC FIBROSIS LUNG
     Dosage: UNK
     Route: 065
     Dates: start: 20020524
  22. CEFTAZIDIME. [Concomitant]
     Active Substance: CEFTAZIDIME
     Dosage: 200 MILLIGRAM, QID
     Route: 042
     Dates: start: 20190207, end: 20190209
  23. MEROPENEM. [Concomitant]
     Active Substance: MEROPENEM
     Dosage: 200 MILLIGRAM, TID
     Route: 042
     Dates: start: 20190117, end: 20190205
  24. OXYCODONE [Concomitant]
     Active Substance: OXYCODONE
     Indication: PAIN
     Dosage: 5 MILLIGRAM, QD
     Route: 048
     Dates: start: 20190131, end: 20190131
  25. ZINC SULFATE. [Concomitant]
     Active Substance: ZINC SULFATE
     Dosage: 220 MILLIGRAM, QD
     Route: 048
     Dates: start: 20190201
  26. ALBUTEROL. [Concomitant]
     Active Substance: ALBUTEROL
     Indication: CYSTIC FIBROSIS LUNG
     Dosage: UNK
     Route: 065
     Dates: start: 20150929
  27. CHOLECALCIFEROL [Concomitant]
     Active Substance: CHOLECALCIFEROL
     Indication: VITAMIN D DEFICIENCY
     Dosage: UNK
     Route: 065
     Dates: start: 20150929

REACTIONS (2)
  - Infective pulmonary exacerbation of cystic fibrosis [Recovered/Resolved]
  - Infective pulmonary exacerbation of cystic fibrosis [Recovered/Resolved]

NARRATIVE: CASE EVENT DATE: 20180912
